FAERS Safety Report 5851905-6 (Version None)
Quarter: 2008Q3

REPORT INFORMATION
  Report Type: 
  Country: None (occurrence: None)
  Receive Date: 20080819
  Receipt Date: 20080804
  Transmission Date: 20090109
  Serious: Yes (Hospitalization)
  Sender: FDA-Public Use
  Company Number: IDA-00121

PATIENT
  Age: 80 Year
  Sex: Female

DRUGS (3)
  1. AVLOCARDYL (PROPRANOLOL) STRENGTH: 40 MG [Suspect]
     Indication: ARRHYTHMIA
     Dosage: 40 MG QD ORAL FORMULATION: TABLET
     Route: 048
     Dates: end: 20080720
  2. CORDARONE [Suspect]
     Indication: ARRHYTHMIA
     Dosage: 200 MG QD ORAL FORMULATION: TABLET
     Route: 048
     Dates: end: 20080720
  3. EXELON [Suspect]
     Indication: DEMENTIA
     Dosage: 1.5 MG BID ORAL FORMULATION: CAPSULE
     Route: 048

REACTIONS (4)
  - BRADYCARDIA [None]
  - DRUG INTERACTION [None]
  - ELECTROCARDIOGRAM QRS COMPLEX PROLONGED [None]
  - LOSS OF CONSCIOUSNESS [None]
